FAERS Safety Report 5816500-3 (Version None)
Quarter: 2008Q3

REPORT INFORMATION
  Report Type: 
  Country: None (occurrence: None)
  Receive Date: 20080717
  Receipt Date: 20080717
  Transmission Date: 20090109
  Serious: Yes (Death)
  Sender: FDA-Public Use
  Company Number: None

PATIENT
  Age: 35 Year
  Sex: Male

DRUGS (1)
  1. ASCENDIN/AMOXAPINE [Suspect]
     Indication: MAJOR DEPRESSION
     Dosage: 100 MG THREE TIMES/DAY PO
     Route: 048

REACTIONS (3)
  - ACCIDENTAL DEATH [None]
  - ARTERIOSCLEROSIS CORONARY ARTERY [None]
  - DRUG TOXICITY [None]
